FAERS Safety Report 7224348-0 (Version None)
Quarter: 2011Q1

REPORT INFORMATION
  Report Type: 
  Country: None (occurrence: None)
  Receive Date: 20110104
  Receipt Date: 20101220
  Transmission Date: 20110831
  Serious: Yes (Hospitalization)
  Sender: FDA-Public Use
  Company Number: 2010SP003495

PATIENT
  Age: 69 Year
  Sex: Female
  Weight: 102.0593 kg

DRUGS (22)
  1. HYDROCODONE BITARTRATE [Concomitant]
  2. ARFORMOTEROL [Suspect]
     Indication: CHRONIC OBSTRUCTIVE PULMONARY DISEASE
     Dosage: 15 UG; INHALATION
     Route: 055
     Dates: start: 20091112, end: 20101108
  3. LOVASTATIN [Concomitant]
  4. ATENOLOL [Concomitant]
  5. ADVIL LIQUI-GELS [Concomitant]
  6. NABUMETONE [Concomitant]
  7. LEVOTHROID [Concomitant]
  8. SPIRIVA [Concomitant]
  9. ALBUTEROL SULFATE [Concomitant]
  10. INFLUENZA VACCINE [Concomitant]
  11. HYDROCODONE [Concomitant]
  12. PULMICORT [Concomitant]
  13. OMNIPAQUE 140 [Concomitant]
  14. PROVENTIL [Concomitant]
  15. MIRALAX [Concomitant]
  16. SEPTRA [Concomitant]
  17. LORAZEPAM [Concomitant]
  18. DILTIAZEM [Concomitant]
  19. PRILOSEC [Concomitant]
  20. VENTOLIN HFA [Concomitant]
  21. ATROVENT [Concomitant]
  22. PREDNISONE [Concomitant]

REACTIONS (3)
  - CORONARY ARTERY DISEASE [None]
  - CHOLECYSTITIS [None]
  - CHOLELITHIASIS [None]
